FAERS Safety Report 10408738 (Version 2)
Quarter: 2014Q4

REPORT INFORMATION
  Report Type: Spontaneous
  Country: US (occurrence: US)
  Receive Date: 20140826
  Receipt Date: 20141007
  Transmission Date: 20150528
  Serious: Yes (Death, Hospitalization, Other)
  Sender: FDA-Public Use
  Company Number: US-JNJFOC-20140821067

PATIENT
  Sex: Female

DRUGS (3)
  1. DOXIL [Suspect]
     Active Substance: DOXORUBICIN HYDROCHLORIDE
     Indication: PLASMA CELL MYELOMA
     Route: 042
     Dates: start: 20120720, end: 20121012
  2. VELCADE [Suspect]
     Active Substance: BORTEZOMIB
     Indication: PLASMA CELL MYELOMA
     Route: 042
     Dates: start: 20110504, end: 20120705
  3. DOXIL [Suspect]
     Active Substance: DOXORUBICIN HYDROCHLORIDE
     Indication: PROPHYLAXIS
     Route: 042
     Dates: start: 20120720, end: 20121012

REACTIONS (13)
  - Pancytopenia [Unknown]
  - Hyperglycaemia [Fatal]
  - Pancreatitis [Unknown]
  - Vomiting [Unknown]
  - Deep vein thrombosis [Fatal]
  - Plasma cell myeloma [Fatal]
  - Nausea [Unknown]
  - Multi-organ failure [Fatal]
  - Septic shock [Fatal]
  - Acute kidney injury [Fatal]
  - Urinary tract infection [Fatal]
  - Endometrial disorder [Unknown]
  - Blood glucose decreased [Unknown]
